FAERS Safety Report 20510313 (Version 1)
Quarter: 2022Q1

REPORT INFORMATION
  Report Type: Spontaneous
  Country: US (occurrence: US)
  Receive Date: 20220224
  Receipt Date: 20220224
  Transmission Date: 20220423
  Serious: Yes (Other)
  Sender: FDA-Public Use
  Company Number: US-JNJFOC-20220242432

PATIENT
  Sex: Female

DRUGS (1)
  1. IMODIUM MULTI-SYMPTOM RELIEF [Suspect]
     Active Substance: DIMETHICONE\LOPERAMIDE HYDROCHLORIDE
     Indication: Diarrhoea
     Dosage: JUST 3 CAPLETS 3 TIMES
     Route: 065
     Dates: start: 20220215

REACTIONS (2)
  - Foreign body in throat [Unknown]
  - Oropharyngeal pain [Not Recovered/Not Resolved]
